FAERS Safety Report 9470065 (Version 1)
Quarter: 2013Q3

REPORT INFORMATION
  Report Type: Spontaneous
  Country: US (occurrence: None)
  Receive Date: 20130820
  Receipt Date: 20130820
  Transmission Date: 20140515
  Serious: Yes (Other)
  Sender: FDA-Public Use
  Company Number: None

PATIENT
  Age: 27 Year
  Sex: Female

DRUGS (1)
  1. BACTRIM DS [Suspect]
     Indication: ACNE
     Dosage: 1 TABLET, BID, PO
     Route: 048
     Dates: start: 20130717, end: 20130720

REACTIONS (2)
  - Myalgia [None]
  - Polyuria [None]
